FAERS Safety Report 11096602 (Version 3)
Quarter: 2015Q3

REPORT INFORMATION
  Report Type: Spontaneous
  Country: FR (occurrence: FR)
  Receive Date: 20150507
  Receipt Date: 20150717
  Transmission Date: 20151125
  Serious: Yes (Life-Threatening, Hospitalization, Other)
  Sender: FDA-Public Use
  Company Number: PHHY2015FR052848

PATIENT
  Age: 26 Year
  Sex: Female
  Weight: 49 kg

DRUGS (3)
  1. PAROXETINE [Suspect]
     Active Substance: PAROXETINE\PAROXETINE HYDROCHLORIDE
     Indication: DEPRESSION
     Dosage: 1 DF, QD (1 TABLET IN THE MORNING AT BREAKFAST)
     Route: 065
     Dates: start: 20140429, end: 2014
  2. ALPRAZOLAM SANDOZ [Suspect]
     Active Substance: ALPRAZOLAM
     Indication: ANXIETY
     Dosage: 0.25MG, TID
     Route: 048
     Dates: start: 20140430, end: 2014
  3. ZOLPIDEM [Concomitant]
     Active Substance: ZOLPIDEM\ZOLPIDEM TARTRATE
     Indication: INSOMNIA
     Dosage: 1 DF, QD, AT BEDTIME,
     Route: 065
     Dates: start: 20140429

REACTIONS (9)
  - Enterobacter infection [Recovered/Resolved]
  - Suicide attempt [Recovered/Resolved]
  - Staphylococcal infection [Recovered/Resolved]
  - Mood altered [Recovered/Resolved]
  - Compartment syndrome [Recovered/Resolved]
  - Amnesia [Recovered/Resolved]
  - Systemic inflammatory response syndrome [Recovered/Resolved]
  - Altered state of consciousness [Recovered/Resolved]
  - Eschar [Unknown]

NARRATIVE: CASE EVENT DATE: 20140505
